FAERS Safety Report 6582464-0 (Version None)
Quarter: 2010Q1

REPORT INFORMATION
  Report Type: 
  Country: None (occurrence: None)
  Receive Date: 20100216
  Receipt Date: 20100204
  Transmission Date: 20100710
  Serious: Yes (Hospitalization)
  Sender: FDA-Public Use
  Company Number: PHHO2009FR15010

PATIENT
  Sex: Male
  Weight: 108 kg

DRUGS (8)
  1. NEORAL [Suspect]
     Dosage: UNK
  2. STI571/CGP57148B T35717+TAB [Suspect]
     Indication: ACUTE LYMPHOCYTIC LEUKAEMIA
     Dosage: UNK
     Dates: start: 20090212
  3. CELLCEPT [Suspect]
  4. HYPER-CVAD [Concomitant]
     Indication: ACUTE LYMPHOCYTIC LEUKAEMIA
     Dosage: UNK
  5. CLAMOXYL [Concomitant]
  6. ZELITREX [Concomitant]
     Dosage: UNK
  7. BACTRIM DS [Concomitant]
     Dosage: UNK
  8. TRIFLUCAN [Concomitant]
     Dosage: UNK

REACTIONS (11)
  - ANAL FISSURE [None]
  - APLASIA [None]
  - BLOOD CREATININE INCREASED [None]
  - DYSURIA [None]
  - HAEMATURIA [None]
  - PARAMETRITIS [None]
  - PELVIC PAIN [None]
  - RENAL FAILURE [None]
  - SEPSIS [None]
  - TUBERCULOSIS [None]
  - URINARY CASTS [None]
